FAERS Safety Report 11480831 (Version 2)
Quarter: 2015Q4

REPORT INFORMATION
  Report Type: Spontaneous
  Country: US (occurrence: US)
  Receive Date: 20150909
  Receipt Date: 20151021
  Transmission Date: 20160304
  Serious: Yes (Other)
  Sender: FDA-Public Use
  Company Number: US-PFIZER INC-2015047207

PATIENT
  Age: 53 Year
  Sex: Female
  Weight: 70.75 kg

DRUGS (9)
  1. LYRICA [Suspect]
     Active Substance: PREGABALIN
     Indication: NERVE INJURY
     Dosage: 100 MG, 3X/DAY
     Route: 048
     Dates: start: 200810
  2. LYRICA [Suspect]
     Active Substance: PREGABALIN
     Indication: NEUROPATHY PERIPHERAL
     Dosage: 100 MG, 3X/DAY
     Route: 048
     Dates: start: 20090606
  3. MULTIPLE VITAMINS [Concomitant]
     Active Substance: VITAMINS
     Dosage: UNK, DAILY
     Route: 048
     Dates: start: 20090527
  4. BUPROPION SR [Concomitant]
     Active Substance: BUPROPION
     Dosage: 100 MG, 2X/DAY
  5. TRAZODONE [Concomitant]
     Active Substance: TRAZODONE HYDROCHLORIDE
     Indication: SLEEP DISORDER
     Dosage: 300 MG (100 MG, 3 OF THEM AT BEDTIME FOR SLEEP), 1X/DAY
  6. BUPROPION SR [Concomitant]
     Active Substance: BUPROPION
     Indication: DEPRESSION
     Dosage: 150 MG, 2X/DAY
     Dates: start: 20090217
  7. LYRICA [Suspect]
     Active Substance: PREGABALIN
     Indication: PAIN
  8. ASPIRIN. [Concomitant]
     Active Substance: ASPIRIN
     Dosage: 81 MG, 1X/DAY
     Route: 048
     Dates: start: 20081023
  9. ALENDRONATE [Concomitant]
     Active Substance: ALENDRONATE SODIUM
     Indication: OSTEOPOROSIS
     Dosage: 70 MG, WEEKLY

REACTIONS (1)
  - Limb injury [Unknown]

NARRATIVE: CASE EVENT DATE: 200905
